FAERS Safety Report 4720877-X (Version None)
Quarter: 2005Q3

REPORT INFORMATION
  Report Type: 
  Country: None (occurrence: None)
  Receive Date: 20050720
  Receipt Date: 20050711
  Transmission Date: 20060218
  Serious: Yes (Hospitalization, Other)
  Sender: FDA-Public Use
  Company Number: 2005100246

PATIENT
  Age: 60 Year
  Sex: Male
  Weight: 84.5 kg

DRUGS (11)
  1. GEODON [Suspect]
     Indication: BIPOLAR DISORDER
     Dosage: 100 MG (20 MG,4 IN 1 D)
     Dates: start: 20050617
  2. ASA (ACETYLSALICYCLIC ACID) [Concomitant]
  3. AVANDIA [Concomitant]
  4. GLYBURIDE [Concomitant]
  5. GLUCOTROL [Concomitant]
  6. INSULIN [Concomitant]
  7. NPH INSULIN [Concomitant]
  8. PLAVIX [Concomitant]
  9. TOPAMAX [Concomitant]
  10. ZETIA [Concomitant]
  11. SEROQUEL [Concomitant]

REACTIONS (7)
  - DRUG INTOLERANCE [None]
  - ELECTROCARDIOGRAM QT CORRECTED INTERVAL PROLONGED [None]
  - INSOMNIA [None]
  - MANIA [None]
  - MYOCARDIAL INFARCTION [None]
  - TREATMENT NONCOMPLIANCE [None]
  - VASCULAR STENOSIS [None]
